FAERS Safety Report 5780506-3 (Version None)
Quarter: 2008Q2

REPORT INFORMATION
  Report Type: 
  Country: None (occurrence: None)
  Receive Date: 20080620
  Receipt Date: 20080506
  Transmission Date: 20081010
  Serious: No
  Sender: FDA-Public Use
  Company Number: A0726592A

PATIENT
  Age: 57 Year
  Sex: Female

DRUGS (4)
  1. AVANDARYL [Suspect]
     Dosage: 1TAB PER DAY
     Route: 048
     Dates: start: 20070101
  2. AVANDIA [Suspect]
     Dosage: 4MG PER DAY
     Route: 048
     Dates: start: 20070201
  3. GLYBURIDE [Concomitant]
  4. TOPROL-XL [Concomitant]

REACTIONS (3)
  - BLOOD GLUCOSE DECREASED [None]
  - MENSTRUAL DISORDER [None]
  - METRORRHAGIA [None]
